FAERS Safety Report 6866135-9 (Version None)
Quarter: 2010Q3

REPORT INFORMATION
  Report Type: 
  Country: None (occurrence: None)
  Receive Date: 20100722
  Receipt Date: 20100713
  Transmission Date: 20110219
  Serious: Yes (Hospitalization, Other)
  Sender: FDA-Public Use
  Company Number: US-JNJFOC-20100704683

PATIENT

DRUGS (2)
  1. RAZADYNE ER [Suspect]
     Indication: DEMENTIA ALZHEIMER'S TYPE
     Route: 048
  2. RAZADYNE [Suspect]
     Indication: DEMENTIA ALZHEIMER'S TYPE
     Route: 065

REACTIONS (4)
  - DRUG ADMINISTRATION ERROR [None]
  - DRUG NAME CONFUSION [None]
  - HOSPITALISATION [None]
  - MEDICATION ERROR [None]
